FAERS Safety Report 9251628 (Version 3)
Quarter: 2013Q3

REPORT INFORMATION
  Report Type: Spontaneous
  Country: US (occurrence: US)
  Receive Date: 20130424
  Receipt Date: 20130927
  Transmission Date: 20140515
  Serious: Yes (Disabling)
  Sender: FDA-Public Use
  Company Number: US-ASTRAZENECA-2013SE27418

PATIENT
  Age: 621 Month
  Sex: Male

DRUGS (27)
  1. NEXIUM [Suspect]
     Indication: DYSPEPSIA
     Route: 048
     Dates: start: 2002, end: 2007
  2. NEXIUM [Suspect]
     Indication: PAIN
     Route: 048
     Dates: start: 2002, end: 2007
  3. NEXIUM [Suspect]
     Indication: DYSPEPSIA
     Route: 048
     Dates: start: 20050721
  4. NEXIUM [Suspect]
     Indication: PAIN
     Route: 048
     Dates: start: 20050721
  5. PRILOSEC [Suspect]
     Route: 048
     Dates: start: 19970806
  6. PRILOSEC OTC [Suspect]
     Route: 048
  7. ZANTAC [Concomitant]
  8. TAGAMET [Concomitant]
  9. FLUOXETINE [Concomitant]
  10. HYDROCODONE [Concomitant]
  11. SIMVASTATIN [Concomitant]
  12. LOVAZA [Concomitant]
  13. D3 [Concomitant]
  14. CALCIUM [Concomitant]
     Dosage: 600 2X
  15. ZOLPIDEM [Concomitant]
  16. NUCYNTA ER [Concomitant]
  17. VITAMIN D [Concomitant]
     Dosage: 50000
  18. ACTONEL [Concomitant]
     Dates: start: 20090409
  19. METHADONE [Concomitant]
  20. TOPAMAX [Concomitant]
  21. ASPIRIN [Concomitant]
  22. CYMBALTA [Concomitant]
     Dates: start: 20071112
  23. DEXA [Concomitant]
     Dates: start: 20071024
  24. NAPROXEN [Concomitant]
     Dates: start: 20070813
  25. GABAPENTIN [Concomitant]
     Dates: start: 20071005
  26. SINGULAIR [Concomitant]
  27. LISINOPRIL HYDROCHLOROTHIAZIDE [Concomitant]
     Dosage: 10-12.5MG
     Dates: start: 20080408

REACTIONS (18)
  - Foot fracture [Unknown]
  - Road traffic accident [Unknown]
  - Ankylosing spondylitis [Unknown]
  - Aortic disorder [Unknown]
  - Arthritis [Unknown]
  - Atrophy [Unknown]
  - Vitamin D deficiency [Unknown]
  - Neuropathy peripheral [Unknown]
  - Osteopenia [Unknown]
  - Osteoarthritis [Unknown]
  - Calcium deficiency [Unknown]
  - Depression [Unknown]
  - Injury [Unknown]
  - Limb injury [Unknown]
  - Complex regional pain syndrome [Unknown]
  - Osteoporosis [Unknown]
  - Bone density decreased [Unknown]
  - Multiple fractures [Unknown]
